FAERS Safety Report 21741800 (Version 7)
Quarter: 2023Q4

REPORT INFORMATION
  Report Type: Spontaneous
  Country: US (occurrence: US)
  Receive Date: 20221216
  Receipt Date: 20231103
  Transmission Date: 20240110
  Serious: Yes (Other)
  Sender: FDA-Public Use
  Company Number: US-PHARMAESSENTIA CORPORATION-US-2022-PEC-000914

PATIENT
  Sex: Female

DRUGS (5)
  1. BESREMI [Suspect]
     Active Substance: ROPEGINTERFERON ALFA-2B-NJFT
     Indication: Polycythaemia vera
     Dosage: 50 MCG, Q2W
     Route: 058
     Dates: start: 20221117
  2. BESREMI [Suspect]
     Active Substance: ROPEGINTERFERON ALFA-2B-NJFT
     Dosage: UNK
     Route: 058
     Dates: start: 20221216
  3. BESREMI [Suspect]
     Active Substance: ROPEGINTERFERON ALFA-2B-NJFT
     Dosage: UNK
     Route: 065
  4. BESREMI [Suspect]
     Active Substance: ROPEGINTERFERON ALFA-2B-NJFT
     Dosage: UNK, EVERY 3 WEEKS
     Route: 065
  5. BESREMI [Suspect]
     Active Substance: ROPEGINTERFERON ALFA-2B-NJFT
     Dosage: 50 MCG, ONCE EVERY 21 DAYS
     Route: 058

REACTIONS (16)
  - Skin cancer [Unknown]
  - Anxiety [Unknown]
  - Rhinorrhoea [Unknown]
  - Nasal congestion [Unknown]
  - Panic attack [Unknown]
  - Stomatitis [Not Recovered/Not Resolved]
  - Off label use [Unknown]
  - Blood lactate dehydrogenase increased [Unknown]
  - Dyspnoea [Unknown]
  - Hepatic enzyme increased [Unknown]
  - Headache [Unknown]
  - Nausea [Not Recovered/Not Resolved]
  - Fatigue [Not Recovered/Not Resolved]
  - Platelet count decreased [Recovering/Resolving]
  - Hypersensitivity [Unknown]
  - Insomnia [Unknown]

NARRATIVE: CASE EVENT DATE: 20221101
